FAERS Safety Report 5159036-8 (Version None)
Quarter: 2006Q4

REPORT INFORMATION
  Report Type: 
  Country: None (occurrence: None)
  Receive Date: 20061117
  Receipt Date: 20061102
  Transmission Date: 20070319
  Serious: Yes (Death)
  Sender: FDA-Public Use
  Company Number: 061106-0000977

PATIENT
  Age: 20 Year
  Sex: 0

DRUGS (2)
  1. METHAMPHETAMINE (METHAMPHETAMINE HYDROCHLORIDE) [Suspect]
     Indication: DRUG USE FOR UNKNOWN INDICATION
     Dosage: INH
     Route: 055
  2. MARIJUANA (CANNABIS) [Suspect]
     Indication: DRUG USE FOR UNKNOWN INDICATION
     Dosage: INH
     Route: 055

REACTIONS (1)
  - INTENTIONAL DRUG MISUSE [None]
